FAERS Safety Report 5517971-2 (Version None)
Quarter: 2007Q4

REPORT INFORMATION
  Report Type: 
  Country: None (occurrence: None)
  Receive Date: 20071115
  Receipt Date: 20071107
  Transmission Date: 20080405
  Serious: Yes (Other)
  Sender: FDA-Public Use
  Company Number: PHBS2007BE17011

PATIENT
  Age: 60 Year
  Sex: Male
  Weight: 89 kg

DRUGS (4)
  1. ZOMETA [Suspect]
     Indication: METASTASES TO BONE
     Dosage: 4 MG EVERY 4 WEEKS
     Dates: start: 20041217
  2. DECAPEPTYL - SLOW RELEASE [Concomitant]
     Dosage: 11.25 MG, UNK
  3. NIZORAL [Concomitant]
     Dosage: 200 MG, BID
     Dates: start: 20070507
  4. PREDNISOLONE [Concomitant]
     Dosage: 5 MG, BID
     Dates: start: 20070507

REACTIONS (1)
  - OSTEONECROSIS [None]
